FAERS Safety Report 11677979 (Version 1)
Quarter: 2015Q4

REPORT INFORMATION
  Report Type: Spontaneous
  Country: US (occurrence: US)
  Receive Date: 20151028
  Receipt Date: 20151028
  Transmission Date: 20160304
  Serious: No
  Sender: FDA-Public Use
  Company Number: US-NOVOPROD-466175

PATIENT
  Age: 20 Year
  Sex: Male
  Weight: 108.84 kg

DRUGS (4)
  1. NOVOEIGHT [Suspect]
     Active Substance: ANTIHEMOPHILIC FACTOR, HUMAN RECOMBINANT
     Indication: HAEMORRHAGE
     Dosage: 5000 IU, FOR MAJOR BLEEDS
     Route: 042
     Dates: start: 201507
  2. NOVOEIGHT [Suspect]
     Active Substance: ANTIHEMOPHILIC FACTOR, HUMAN RECOMBINANT
     Dosage: 2500 IU, FOR PROPHYLAXIS
     Route: 042
     Dates: start: 201507
  3. NOVOEIGHT [Suspect]
     Active Substance: ANTIHEMOPHILIC FACTOR, HUMAN RECOMBINANT
     Dosage: 2500 IU, FOR PROPHYLAXIS
     Route: 042
     Dates: start: 201507
  4. NOVOEIGHT [Suspect]
     Active Substance: ANTIHEMOPHILIC FACTOR, HUMAN RECOMBINANT
     Indication: FACTOR VIII DEFICIENCY
     Dosage: 2500 IU, FOR PROPHYLAXIS
     Route: 042
     Dates: start: 201507

REACTIONS (4)
  - Anti factor VIII antibody test [Unknown]
  - Drug ineffective [Recovered/Resolved]
  - Drug effect delayed [Recovered/Resolved]
  - Haemorrhage [Recovered/Resolved]

NARRATIVE: CASE EVENT DATE: 201508
